FAERS Safety Report 25896382 (Version 1)
Quarter: 2025Q4

REPORT INFORMATION
  Report Type: Spontaneous
  Country: US (occurrence: US)
  Receive Date: 20251008
  Receipt Date: 20251008
  Transmission Date: 20260117
  Serious: No
  Sender: AMGEN
  Company Number: US-AMGEN-USASP2025198383

PATIENT
  Sex: Male

DRUGS (2)
  1. KRYSTEXXA [Suspect]
     Active Substance: PEGLOTICASE
     Indication: Product used for unknown indication
     Dosage: UNK
     Route: 040
  2. KRYSTEXXA [Suspect]
     Active Substance: PEGLOTICASE
     Dosage: UNK
     Route: 040
     Dates: start: 20251002

REACTIONS (4)
  - Diarrhoea [Recovering/Resolving]
  - Urticaria [Recovering/Resolving]
  - Feeling hot [Recovering/Resolving]
  - Nasopharyngitis [Recovering/Resolving]
